FAERS Safety Report 5289726-8 (Version None)
Quarter: 2007Q2

REPORT INFORMATION
  Report Type: 
  Country: None (occurrence: None)
  Receive Date: 20070406
  Receipt Date: 20070328
  Transmission Date: 20071010
  Serious: Yes (Disabling, Other)
  Sender: FDA-Public Use
  Company Number: GBWYE239128MAR07

PATIENT
  Age: 57 Year
  Sex: Female

DRUGS (3)
  1. PREMIQUE CYCLE [Suspect]
     Indication: MENOPAUSAL SYMPTOMS
     Route: 048
     Dates: start: 20040401, end: 20041201
  2. BENDROFLUAZIDE [Concomitant]
     Indication: HYPERTENSION
     Route: 048
     Dates: start: 20020910
  3. LACIDIPINE [Concomitant]
     Indication: HYPERTENSION
     Route: 048
     Dates: start: 20020801

REACTIONS (2)
  - SLEEP DISORDER [None]
  - URTICARIA [None]
